FAERS Safety Report 10815438 (Version 1)
Quarter: 2015Q1

REPORT INFORMATION
  Report Type: Report from Study
  Country: US (occurrence: US)
  Receive Date: 20150218
  Receipt Date: 20150218
  Transmission Date: 20150721
  Serious: No
  Sender: FDA-Public Use
  Company Number: US-ABBVIE-14K-163-1285921-00

PATIENT
  Age: 60 Year
  Sex: Female
  Weight: 56.75 kg

DRUGS (4)
  1. UNKNOWN TB MEDICATION [Concomitant]
     Indication: ANTIBIOTIC PROPHYLAXIS
     Dates: start: 201405
  2. FOLIC ACID. [Concomitant]
     Active Substance: FOLIC ACID
     Indication: VITAMIN SUPPLEMENTATION
  3. HUMIRA [Suspect]
     Active Substance: ADALIMUMAB
     Indication: RHEUMATOID ARTHRITIS
     Route: 058
     Dates: start: 20140815
  4. VITAMIN B 6 [Concomitant]
     Indication: VITAMIN SUPPLEMENTATION

REACTIONS (1)
  - Oral mucosal eruption [Recovered/Resolved]

NARRATIVE: CASE EVENT DATE: 20140816
